FAERS Safety Report 9150963 (Version 2)
Quarter: 2013Q1

REPORT INFORMATION
  Report Type: Spontaneous
  Country: JP (occurrence: None)
  Receive Date: 20130201
  Receipt Date: 20130222
  Transmission Date: 20140127
  Serious: No
  Sender: FDA-Public Use
  Company Number: SPI201300022

PATIENT
  Age: 43 Year
  Sex: Female

DRUGS (1)
  1. AMITIZA [Suspect]
     Indication: CONSTIPATION
     Route: 048
     Dates: start: 20121226, end: 20121226

REACTIONS (10)
  - Tension headache [None]
  - Chills [None]
  - Wheezing [None]
  - Cough [None]
  - Throat tightness [None]
  - Dyspnoea [None]
  - Nausea [None]
  - Diarrhoea [None]
  - Dizziness [None]
  - Malaise [None]
